FAERS Safety Report 14985557 (Version 1)
Quarter: 2018Q2

REPORT INFORMATION
  Report Type: Spontaneous
  Country: JP (occurrence: JP)
  Receive Date: 20180607
  Receipt Date: 20180607
  Transmission Date: 20180711
  Serious: Yes (Other)
  Sender: FDA-Public Use
  Company Number: PHJP2018JP011945

PATIENT
  Age: 74 Year
  Sex: Female

DRUGS (2)
  1. NEORAL [Suspect]
     Active Substance: CYCLOSPORINE
     Indication: INTERSTITIAL LUNG DISEASE
     Dosage: UNK
     Route: 048
  2. PREDONINE [Suspect]
     Active Substance: PREDNISOLONE
     Indication: INTERSTITIAL LUNG DISEASE
     Dosage: UNK
     Route: 065

REACTIONS (9)
  - Respiratory disorder [Unknown]
  - Chest pain [Unknown]
  - Inflammation [Unknown]
  - Oesophageal perforation [Recovered/Resolved]
  - Accidental exposure to product packaging [Unknown]
  - Mediastinitis [Unknown]
  - Pneumomediastinum [Unknown]
  - Product use in unapproved indication [Unknown]
  - Pleural effusion [Unknown]
